FAERS Safety Report 6527231-9 (Version None)
Quarter: 2009Q4

REPORT INFORMATION
  Report Type: 
  Country: None (occurrence: None)
  Receive Date: 20091230
  Receipt Date: 20091112
  Transmission Date: 20100525
  Serious: Yes (Other)
  Sender: FDA-Public Use
  Company Number: 2009BM000285

PATIENT
  Age: 16 Year
  Sex: Male
  Weight: 22.8 kg

DRUGS (4)
  1. NAGLAZYME [Suspect]
     Indication: MUCOPOLYSACCHARIDOSIS VI
     Dosage: 4 VIALS; QW; IVDRP
     Route: 041
     Dates: start: 20040709
  2. DIPHENHYDRAMINE HCL [Suspect]
     Indication: PREMEDICATION
     Dosage: 0.2 ML; 1X;
     Dates: start: 20091027, end: 20091027
  3. DIPHENHYDRAMINE HCL [Suspect]
     Indication: PREMEDICATION
     Dosage: 0.2 ML; 1X;
     Dates: start: 20091110, end: 20091110
  4. PHENOBARBITAL [Concomitant]

REACTIONS (3)
  - BRADYCARDIA [None]
  - INFUSION RELATED REACTION [None]
  - OXYGEN SATURATION DECREASED [None]
